FAERS Safety Report 22099592 (Version 1)
Quarter: 2023Q1

REPORT INFORMATION
  Report Type: Spontaneous
  Country: US (occurrence: US)
  Receive Date: 20230315
  Receipt Date: 20230315
  Transmission Date: 20230418
  Serious: Yes (Life-Threatening, Hospitalization, Other)
  Sender: FDA-Public Use
  Company Number: US-JUBILANT CADISTA PHARMACEUTICALS-2023JUB00111

PATIENT
  Sex: Female

DRUGS (6)
  1. LEVETIRACETAM [Suspect]
     Active Substance: LEVETIRACETAM
     Indication: Dyskinesia
     Dosage: (CUMULATIVE DOSE: 120 MG/KG), 120 MG/KG TOTAL, 60 MG/KG IN TWO DOSES
  2. LORAZEPAM [Suspect]
     Active Substance: LORAZEPAM
     Indication: Dyskinesia
     Dosage: (CUMULATIVE DOSE: 0.2 MG/KG), 0.2 MG/KG TOTAL, 0.1 MG/KG IN TWO DOSES
  3. PHENOBARBITAL [Suspect]
     Active Substance: PHENOBARBITAL
     Indication: Dyskinesia
     Dosage: (CUMULATIVE DOSE: 80 MG/KG), 80 MG/KG TOTAL 40 MG/KG IN TWO DOSES
  4. ATROPINE [Concomitant]
     Active Substance: ATROPINE
     Indication: Endotracheal intubation
     Dosage: 0.01 MG/KG
  5. SUCCINYLCHOLINE [Concomitant]
     Active Substance: SUCCINYLCHOLINE
     Indication: Endotracheal intubation
     Dosage: 2 MG/KG
  6. FENTANYL [Concomitant]
     Active Substance: FENTANYL
     Indication: Endotracheal intubation
     Dosage: 2 UG/KG

REACTIONS (2)
  - Apnoea [Unknown]
  - Respiratory failure [Unknown]
